FAERS Safety Report 6319406-9 (Version None)
Quarter: 2009Q3

REPORT INFORMATION
  Report Type: 
  Country: None (occurrence: None)
  Receive Date: 20090822
  Receipt Date: 20080904
  Transmission Date: 20100115
  Serious: No
  Sender: FDA-Public Use
  Company Number: US-ABBOTT-08P-163-0474255-00

PATIENT
  Sex: Male
  Weight: 73.548 kg

DRUGS (2)
  1. NIASPAN [Suspect]
     Indication: LOW DENSITY LIPOPROTEIN INCREASED
     Route: 048
     Dates: start: 20080819
  2. UNKNOWN BP MED [Concomitant]
     Indication: BLOOD PRESSURE

REACTIONS (1)
  - HEADACHE [None]
